APPROVED DRUG PRODUCT: POLYMYXIN B SULFATE
Active Ingredient: POLYMYXIN B SULFATE
Strength: 100,000,000 UNITS/BOT
Dosage Form/Route: POWDER;FOR RX COMPOUNDING
Application: A062455 | Product #001
Applicant: PADDOCK LABORATORIES LLC
Approved: Jul 27, 1983 | RLD: No | RS: No | Type: DISCN